FAERS Safety Report 10755890 (Version 1)
Quarter: 2015Q1

REPORT INFORMATION
  Report Type: Spontaneous
  Country: JP (occurrence: JP)
  Receive Date: 20150202
  Receipt Date: 20150202
  Transmission Date: 20150721
  Serious: Yes (Hospitalization)
  Sender: FDA-Public Use
  Company Number: JP-BAYER-2014-157372

PATIENT
  Age: 83 Year
  Sex: Male

DRUGS (1)
  1. BAYASPIRIN [Suspect]
     Active Substance: ASPIRIN
     Route: 048

REACTIONS (8)
  - Asphyxia [None]
  - Pulseless electrical activity [None]
  - Acute respiratory distress syndrome [None]
  - Flail chest [None]
  - Melaena [None]
  - Haematemesis [None]
  - Cardiac failure congestive [None]
  - Pulmonary oedema [None]
